FAERS Safety Report 17636765 (Version 1)
Quarter: 2020Q2

REPORT INFORMATION
  Report Type: Spontaneous
  Country: US (occurrence: US)
  Receive Date: 20200406
  Receipt Date: 20200406
  Transmission Date: 20200713
  Serious: No
  Sender: FDA-Public Use
  Company Number: None

PATIENT
  Age: 95 Year
  Sex: Male
  Weight: 67.05 kg

DRUGS (1)
  1. LOVENOX [Suspect]
     Active Substance: ENOXAPARIN SODIUM
     Indication: DEEP VEIN THROMBOSIS
     Route: 058
     Dates: start: 20200131, end: 20200201

REACTIONS (5)
  - Drug hypersensitivity [None]
  - Cellulitis [None]
  - Joint swelling [None]
  - Haematoma [None]
  - Peripheral swelling [None]

NARRATIVE: CASE EVENT DATE: 20200201
